FAERS Safety Report 5966799-8 (Version None)
Quarter: 2008Q4

REPORT INFORMATION
  Report Type: 
  Country: None (occurrence: None)
  Receive Date: 20081125
  Receipt Date: 20081119
  Transmission Date: 20090506
  Serious: No
  Sender: FDA-Public Use
  Company Number: US-B.I. PHARMACEUTICALS,INC./RIDGEFIELD-2008-BP-17523BP

PATIENT
  Age: 71 Year
  Sex: Male

DRUGS (13)
  1. SPIRIVA [Suspect]
     Indication: EMPHYSEMA
     Dates: start: 20070301
  2. NAMENDA [Suspect]
     Indication: DEMENTIA ALZHEIMER'S TYPE
     Dosage: 10MG
     Route: 048
     Dates: start: 20081110
  3. NAMENDA [Suspect]
     Dosage: 5MG
     Route: 048
     Dates: start: 20081103, end: 20081109
  4. ARICEPT [Concomitant]
     Indication: DEMENTIA ALZHEIMER'S TYPE
     Dosage: 5MG
     Route: 048
  5. PREDNISONE TAB [Concomitant]
     Indication: EMPHYSEMA
     Route: 048
  6. FELODIPINE [Concomitant]
     Indication: HYPERTENSION
     Dosage: 10MG
     Route: 048
  7. HYDRALAZINE HCL [Concomitant]
     Dosage: 150MG
     Route: 048
  8. TEKTURNA [Concomitant]
     Indication: HYPERTENSION
     Dosage: 150MG
     Route: 048
  9. FOSAMAX [Concomitant]
  10. COMBIVENT [Concomitant]
     Indication: EMPHYSEMA
  11. CALCIUM [Concomitant]
  12. FISH OIL [Concomitant]
  13. ASPIRIN [Concomitant]

REACTIONS (5)
  - CONFUSIONAL STATE [None]
  - DYSPNOEA [None]
  - FEELING ABNORMAL [None]
  - PALLOR [None]
  - TREMOR [None]
